FAERS Safety Report 10187401 (Version 1)
Quarter: 2014Q2

REPORT INFORMATION
  Report Type: Spontaneous
  Country: US (occurrence: None)
  Receive Date: 20140521
  Receipt Date: 20140521
  Transmission Date: 20141212
  Serious: Yes (Hospitalization)
  Sender: FDA-Public Use
  Company Number: None

PATIENT
  Age: 58 Year
  Sex: Female

DRUGS (1)
  1. MELOXICAM [Suspect]
     Dates: start: 201106, end: 201205

REACTIONS (4)
  - Drug-induced liver injury [None]
  - Hepatic cirrhosis [None]
  - Ascites [None]
  - Hepatic failure [None]
